FAERS Safety Report 7338595-0 (Version None)
Quarter: 2011Q1

REPORT INFORMATION
  Report Type: 
  Country: None (occurrence: None)
  Receive Date: 20110308
  Receipt Date: 20110224
  Transmission Date: 20110831
  Serious: Yes (Hospitalization)
  Sender: FDA-Public Use
  Company Number: US-ASTRAZENECA-2010SE35750

PATIENT
  Age: 22758 Day
  Sex: Female

DRUGS (4)
  1. TOPROL-XL [Suspect]
     Indication: ACUTE CORONARY SYNDROME
     Route: 048
  2. LIPITOR [Concomitant]
  3. PLAVIX [Concomitant]
  4. ASPIRIN [Concomitant]

REACTIONS (6)
  - ECG SIGNS OF MYOCARDIAL ISCHAEMIA [None]
  - CARDIAC ENZYMES INCREASED [None]
  - EJECTION FRACTION [None]
  - CARDIAC DISORDER [None]
  - DRUG INEFFECTIVE [None]
  - ACUTE CORONARY SYNDROME [None]
